FAERS Safety Report 9612000 (Version 2)
Quarter: 2013Q4

REPORT INFORMATION
  Report Type: Spontaneous
  Country: GB (occurrence: GB)
  Receive Date: 20131010
  Receipt Date: 20131010
  Transmission Date: 20140711
  Serious: Yes (Life-Threatening)
  Sender: FDA-Public Use
  Company Number: GB-PFIZER INC-2013273614

PATIENT
  Age: 41 Year
  Sex: Female

DRUGS (7)
  1. RIFAMPICIN [Suspect]
     Indication: LYMPH NODE TUBERCULOSIS
     Dosage: UNK
  2. ETHAMBUTOL [Suspect]
     Indication: LYMPH NODE TUBERCULOSIS
     Dosage: UNK
  3. ETHAMBUTOL [Suspect]
     Dosage: UNK
  4. ISONIAZID [Suspect]
     Indication: LYMPH NODE TUBERCULOSIS
     Dosage: UNK
  5. ISONIAZID [Suspect]
     Dosage: UNK
  6. PYRAZINAMIDE [Suspect]
     Indication: LYMPH NODE TUBERCULOSIS
     Dosage: UNK
  7. PYRAZINAMIDE [Suspect]
     Dosage: UNK

REACTIONS (1)
  - Drug reaction with eosinophilia and systemic symptoms [Recovered/Resolved]
